FAERS Safety Report 13534832 (Version 1)
Quarter: 2017Q2

REPORT INFORMATION
  Report Type: Spontaneous
  Country: US (occurrence: US)
  Receive Date: 20170510
  Receipt Date: 20170510
  Transmission Date: 20170830
  Serious: Yes (Life-Threatening, Hospitalization)
  Sender: FDA-Public Use
  Company Number: None

PATIENT
  Age: 29 Year
  Sex: Female
  Weight: 67.5 kg

DRUGS (2)
  1. NUVARING [Suspect]
     Active Substance: ETHINYL ESTRADIOL\ETONOGESTREL
     Indication: CONTRACEPTION
     Dosage: QUANTITY:1 RING;OTHER FREQUENCY:21 DAYS ON;?
     Route: 067
     Dates: start: 20170301, end: 20170505
  2. NUVARING [Suspect]
     Active Substance: ETHINYL ESTRADIOL\ETONOGESTREL
     Indication: MENSTRUATION IRREGULAR
     Dosage: QUANTITY:1 RING;OTHER FREQUENCY:21 DAYS ON;?
     Route: 067
     Dates: start: 20170301, end: 20170505

REACTIONS (4)
  - Pulmonary embolism [None]
  - Loss of personal independence in daily activities [None]
  - Chest pain [None]
  - Dyspnoea [None]

NARRATIVE: CASE EVENT DATE: 20170505
